FAERS Safety Report 12555985 (Version 2)
Quarter: 2016Q3

REPORT INFORMATION
  Report Type: Spontaneous
  Country: US (occurrence: US)
  Receive Date: 20160714
  Receipt Date: 20160818
  Transmission Date: 20161109
  Serious: Yes (Disabling, Other)
  Sender: FDA-Public Use
  Company Number: US-AUROBINDO-AUR-APU-2016-08867

PATIENT
  Sex: Male

DRUGS (2)
  1. LEVETIRACETAM TABLET [Suspect]
     Active Substance: LEVETIRACETAM
     Dosage: 250 MG, ONCE A DAY
     Route: 065
  2. LEVETIRACETAM TABLET [Suspect]
     Active Substance: LEVETIRACETAM
     Indication: SEIZURE
     Dosage: 1000 MG, TWO TIMES A DAY
     Route: 065

REACTIONS (2)
  - Abasia [Not Recovered/Not Resolved]
  - Speech disorder [Not Recovered/Not Resolved]
